FAERS Safety Report 23781044 (Version 1)
Quarter: 2024Q2

REPORT INFORMATION
  Report Type: Spontaneous
  Country: US (occurrence: US)
  Receive Date: 20240425
  Receipt Date: 20240425
  Transmission Date: 20240715
  Serious: Yes (Hospitalization, Other)
  Sender: FDA-Public Use
  Company Number: US-CADILA HEALTHCARE LIMITED-US-ZYDUS-105839

PATIENT

DRUGS (1)
  1. HALOPERIDOL [Suspect]
     Active Substance: HALOPERIDOL
     Indication: Schizophrenia
     Dosage: 80 MILLIGRAM
     Route: 065

REACTIONS (3)
  - Encephalopathy [Unknown]
  - Pericarditis [Unknown]
  - Overdose [Unknown]
